FAERS Safety Report 22182488 (Version 1)
Quarter: 2023Q2

REPORT INFORMATION
  Report Type: Spontaneous
  Country: BE (occurrence: BE)
  Receive Date: 20230406
  Receipt Date: 20230406
  Transmission Date: 20230721
  Serious: Yes (Other)
  Sender: FDA-Public Use
  Company Number: BE-009507513-2302BEL001491

PATIENT
  Age: 79 Year
  Sex: Female
  Weight: 51.5 kg

DRUGS (2)
  1. ROCURONIUM BROMIDE [Suspect]
     Active Substance: ROCURONIUM BROMIDE
     Indication: Product used for unknown indication
     Dosage: 0.78 MILLIGRAM/KILOGRAM, QH?FORM OF ADMIN SOLUTION FOR INJECTION
     Dates: start: 20221208, end: 20221208
  2. BRIDION [Suspect]
     Active Substance: SUGAMMADEX
     Indication: Neuromuscular blockade reversal
     Dosage: 7.5 MILLIGRAM/KILOGRAM?FORM OF ADMIN SOLUTION FOR INJECTION
     Dates: start: 20221208, end: 20221208

REACTIONS (7)
  - Intensive care [None]
  - Recurrence of neuromuscular blockade [Recovered/Resolved]
  - Endotracheal intubation [Recovered/Resolved]
  - Mechanical ventilation [None]
  - Somnolence [None]
  - Respiratory acidosis [None]
  - Coma scale abnormal [None]

NARRATIVE: CASE EVENT DATE: 20221208
